FAERS Safety Report 6635702-X (Version None)
Quarter: 2010Q1

REPORT INFORMATION
  Report Type: 
  Country: None (occurrence: None)
  Receive Date: 20100312
  Receipt Date: 20100312
  Transmission Date: 20100710
  Serious: Yes (Death)
  Sender: FDA-Public Use
  Company Number: None

PATIENT
  Sex: Male

DRUGS (1)
  1. BICALUTAMIDE [Suspect]
     Dosage: 150 MG DAILY ORAL
     Route: 048
     Dates: start: 20090901, end: 20100304

REACTIONS (1)
  - DEATH [None]
